FAERS Safety Report 15864896 (Version 1)
Quarter: 2019Q1

REPORT INFORMATION
  Report Type: Spontaneous
  Country: US (occurrence: US)
  Receive Date: 20190124
  Receipt Date: 20190124
  Transmission Date: 20190417
  Serious: Yes (Life-Threatening)
  Sender: FDA-Public Use
  Company Number: PHEH2019US003589

PATIENT
  Age: 44 Year
  Sex: Male

DRUGS (2)
  1. MEKINIST [Suspect]
     Active Substance: TRAMETINIB DIMETHYL SULFOXIDE
     Indication: GLIOBLASTOMA
     Dosage: UNK UNK, QD
     Route: 048
     Dates: start: 201811, end: 201901
  2. TAFINLAR [Suspect]
     Active Substance: DABRAFENIB MESYLATE
     Indication: GLIOBLASTOMA
     Dosage: UNK UNK, QD
     Route: 048
     Dates: start: 201811, end: 201901

REACTIONS (2)
  - Ischaemic stroke [Unknown]
  - Product use in unapproved indication [Unknown]
